FAERS Safety Report 6338115-3 (Version None)
Quarter: 2009Q3

REPORT INFORMATION
  Report Type: 
  Country: None (occurrence: None)
  Receive Date: 20090902
  Receipt Date: 20090820
  Transmission Date: 20100115
  Serious: Yes (Disabling, Other)
  Sender: FDA-Public Use
  Company Number: US-ROCHE-640696

PATIENT
  Age: 56 Year
  Sex: Female
  Weight: 51.7 kg

DRUGS (4)
  1. PEGASYS [Suspect]
     Indication: HEPATITIS C
     Route: 058
     Dates: start: 20090417, end: 20090617
  2. RIBAVIRIN [Suspect]
     Indication: HEPATITIS C
     Dosage: DOSAGE:400 MG IN THE MORNING AND 600 MG IN THE EVENING.
     Route: 048
     Dates: start: 20090417, end: 20090617
  3. PROCRIT [Concomitant]
     Indication: ANAEMIA
     Route: 058
     Dates: start: 20090502
  4. PHENERGAN [Concomitant]
     Indication: NAUSEA
     Dosage: FREQUENCY REPORTED AS ^T PO 6 HOUR^.
     Route: 048
     Dates: start: 20090504

REACTIONS (6)
  - HAEMOGLOBIN DECREASED [None]
  - HAEMOLYSIS [None]
  - POLYARTHRITIS [None]
  - SJOGREN'S SYNDROME [None]
  - SYSTEMIC LUPUS ERYTHEMATOSUS [None]
  - WHEELCHAIR USER [None]
